FAERS Safety Report 19175290 (Version 2)
Quarter: 2021Q2

REPORT INFORMATION
  Report Type: Spontaneous
  Country: IT (occurrence: IT)
  Receive Date: 20210424
  Receipt Date: 20210625
  Transmission Date: 20210717
  Serious: Yes (Other)
  Sender: FDA-Public Use
  Company Number: IT-TEVA-2021-IT-1903006

PATIENT
  Age: 52 Year
  Sex: Male
  Weight: 61 kg

DRUGS (6)
  1. OXALIPLATIN. [Concomitant]
     Active Substance: OXALIPLATIN
     Indication: OESOPHAGEAL CARCINOMA
     Dosage: 180 MG
     Route: 042
     Dates: start: 20210318
  2. LANSOPRAZOLE. [Concomitant]
     Active Substance: LANSOPRAZOLE
  3. FLUOROURACILE TEVA [Suspect]
     Active Substance: FLUOROURACIL
     Indication: OESOPHAGEAL CARCINOMA
     Dosage: 4000 MG
     Route: 041
     Dates: start: 20210318
  4. CALCIUM LEVOFOLINATE [Concomitant]
     Active Substance: LEVOLEUCOVORIN CALCIUM
     Indication: OESOPHAGEAL CARCINOMA
     Dosage: 360 MG
     Route: 042
     Dates: start: 20210318
  5. FLUOROURACILE TEVA [Concomitant]
     Active Substance: FLUOROURACIL
     Indication: OESOPHAGEAL CARCINOMA
     Route: 041
     Dates: start: 20210318
  6. FLUOROURACILE TEVA [Suspect]
     Active Substance: FLUOROURACIL
     Indication: OESOPHAGEAL CARCINOMA
     Dosage: 700 MG
     Route: 040
     Dates: start: 20210318

REACTIONS (1)
  - Bronchospasm [Recovered/Resolved]

NARRATIVE: CASE EVENT DATE: 20210403
